FAERS Safety Report 7410390-3 (Version None)
Quarter: 2011Q2

REPORT INFORMATION
  Report Type: 
  Country: None (occurrence: None)
  Receive Date: 20110412
  Receipt Date: 20110405
  Transmission Date: 20111010
  Serious: Yes (Hospitalization, Other)
  Sender: FDA-Public Use
  Company Number: US-US-EMD SERONO, INC.-7052464

PATIENT
  Sex: Female
  Weight: 82 kg

DRUGS (1)
  1. REBIF [Suspect]
     Indication: MULTIPLE SCLEROSIS
     Route: 058
     Dates: start: 20050927

REACTIONS (9)
  - VIRAL INFECTION [None]
  - HEART RATE DECREASED [None]
  - ANXIETY [None]
  - DEHYDRATION [None]
  - TYPE 2 DIABETES MELLITUS [None]
  - VITAL FUNCTIONS ABNORMAL [None]
  - FIBROMYALGIA [None]
  - MULTIPLE SCLEROSIS RELAPSE [None]
  - DEPRESSION [None]
